FAERS Safety Report 13589229 (Version 2)
Quarter: 2017Q2

REPORT INFORMATION
  Report Type: Report from Study
  Country: None (occurrence: HU)
  Receive Date: 20170529
  Receipt Date: 20170601
  Transmission Date: 20170830
  Serious: Yes (Hospitalization)
  Sender: FDA-Public Use
  Company Number: HU-ABBVIE-17K-076-1989696-00

PATIENT
  Age: 38 Year

DRUGS (1)
  1. HUMIRA [Suspect]
     Active Substance: ADALIMUMAB
     Indication: PRODUCT USED FOR UNKNOWN INDICATION
     Route: 058
     Dates: start: 20160509

REACTIONS (3)
  - Salivary gland pain [Unknown]
  - Salivary gland enlargement [Unknown]
  - Salivary gland adenoma [Unknown]

NARRATIVE: CASE EVENT DATE: 20170522
